FAERS Safety Report 12766591 (Version 1)
Quarter: 2016Q3

REPORT INFORMATION
  Report Type: Spontaneous
  Country: US (occurrence: US)
  Receive Date: 20160921
  Receipt Date: 20160921
  Transmission Date: 20161109
  Serious: No
  Sender: FDA-Public Use
  Company Number: None

PATIENT
  Sex: Female
  Weight: 58.97 kg

DRUGS (18)
  1. CRESTOR-ROSUVASTATIN [Concomitant]
  2. ALEVE [Concomitant]
     Active Substance: NAPROXEN SODIUM
  3. TRAMADOL-ULTRAM [Concomitant]
  4. DULERA [Concomitant]
     Active Substance: FORMOTEROL FUMARATE DIHYDRATE\MOMETASONE FUROATE
  5. SENNA [Concomitant]
     Active Substance: SENNA LEAF\SENNOSIDES\SENNOSIDES A AND B
  6. FENTANYL TRANSDERMAL SYSTEM [Concomitant]
     Active Substance: FENTANYL
  7. MULTI VITAMIN [Concomitant]
     Active Substance: VITAMINS
  8. CLONAZEPAM. [Concomitant]
     Active Substance: CLONAZEPAM
  9. AMPHET-DEXTRO [Concomitant]
  10. PROCHLOR PER COMPAZINE [Concomitant]
  11. DIVALPROEX - DEPAKOTE [Concomitant]
  12. TRAZODONE-DESYREL [Concomitant]
  13. VENLAFAXINE E EFFEXOR [Concomitant]
  14. COMBIVENT [Concomitant]
     Active Substance: ALBUTEROL SULFATE\IPRATROPIUM BROMIDE
  15. VENLAFAXINE [Suspect]
     Active Substance: VENLAFAXINE HYDROCHLORIDE
     Indication: BIPOLAR DISORDER
     Dosage: VENLAFAXINE EFFEXOR 150MG CAP - 2 PILL/DAILY/PO
     Route: 048
  16. B-12 COMPLEX [Concomitant]
  17. CHLORPROMAZ THORAZINE [Concomitant]
  18. B-COMPLEX B-12 [Concomitant]

REACTIONS (1)
  - Drug screen false positive [None]
